FAERS Safety Report 7799357-3 (Version None)
Quarter: 2011Q4

REPORT INFORMATION
  Report Type: 
  Country: None (occurrence: None)
  Receive Date: 20111006
  Receipt Date: 20110930
  Transmission Date: 20120403
  Serious: Yes (Other)
  Sender: FDA-Public Use
  Company Number: JP-B.I. PHARMACEUTICALS,INC./RIDGEFIELD-2011-DE-04331GD

PATIENT
  Sex: Male
  Weight: 73 kg

DRUGS (5)
  1. NITROGLYCERIN [Concomitant]
     Indication: HYPERTENSION
     Dosage: 4.8 MG
     Route: 042
     Dates: start: 20100704
  2. NITROGLYCERIN [Concomitant]
     Indication: CARDIAC FAILURE CONGESTIVE
  3. MICARDIS [Suspect]
     Indication: HYPERTENSION
     Dosage: 40 MG
     Route: 048
     Dates: start: 20100705, end: 20100705
  4. HANP [Concomitant]
     Indication: CARDIAC FAILURE CONGESTIVE
     Dosage: 1000 MCG
     Route: 042
     Dates: start: 20100704, end: 20100705
  5. LASIX [Concomitant]
     Indication: CARDIAC FAILURE CONGESTIVE
     Dosage: 20 MG
     Route: 042
     Dates: start: 20100704, end: 20100705

REACTIONS (2)
  - BLOOD PRESSURE DECREASED [None]
  - RENAL FAILURE ACUTE [None]
